FAERS Safety Report 7864220-6 (Version None)
Quarter: 2011Q4

REPORT INFORMATION
  Report Type: 
  Country: None (occurrence: None)
  Receive Date: 20111028
  Receipt Date: 20111025
  Transmission Date: 20120403
  Serious: Yes (Death, Other)
  Sender: FDA-Public Use
  Company Number: JP-PFIZER INC-2011172411

PATIENT
  Age: 69 Year
  Sex: Female
  Weight: 39 kg

DRUGS (11)
  1. ZOSYN [Suspect]
     Indication: PYREXIA
     Dosage: 4.5 G, 2X/DAY
     Route: 041
     Dates: start: 20110627, end: 20110710
  2. ZOSYN [Suspect]
     Indication: PNEUMONIA
  3. TATHION [Concomitant]
     Indication: LIVER DISORDER
     Dosage: 1 DF, 1X/DAY
     Dates: start: 20110711
  4. INTRAFAT [Concomitant]
     Indication: MALNUTRITION
     Dosage: 1V, 1X/DAY
     Route: 041
     Dates: start: 20110721
  5. UNASYN [Suspect]
     Indication: PNEUMONIA
     Dosage: 1.5 G, 2X/DAY
     Route: 042
     Dates: start: 20110721, end: 20110726
  6. LIVERES [Concomitant]
     Indication: LIVER DISORDER
     Dosage: 1 DF, 1X/DAY
     Dates: start: 20110711
  7. TPN ELECTROLYTES IN PLASTIC CONTAINER [Concomitant]
     Indication: MALNUTRITION
     Dosage: 500 ML, 2X/DAY
     Route: 041
     Dates: start: 20110630, end: 20110722
  8. BISOLVON [Concomitant]
     Indication: BRONCHITIS
     Dosage: 2 DF, 2X/DAY
     Route: 042
     Dates: start: 20110717
  9. HUMULIN R [Concomitant]
     Indication: DIABETES MELLITUS
     Dosage: 14 UNITS, 1X/DAY
     Route: 058
  10. NICARDIPINE HCL [Concomitant]
     Indication: HYPERTENSION
     Dosage: 20 MG, 1X/DAY
     Route: 041
     Dates: start: 20110708
  11. STRONG NEO-MINOPHAGEN C [Concomitant]
     Indication: LIVER DISORDER
     Dosage: 2 DF, 1X/DAY
     Dates: start: 20110711

REACTIONS (3)
  - CARDIAC FAILURE [None]
  - HEPATIC ENZYME INCREASED [None]
  - PNEUMONIA ASPIRATION [None]
